FAERS Safety Report 4897723-7 (Version None)
Quarter: 2006Q1

REPORT INFORMATION
  Report Type: 
  Country: None (occurrence: None)
  Receive Date: 20060201
  Receipt Date: 20051128
  Transmission Date: 20060701
  Serious: Yes (Hospitalization)
  Sender: FDA-Public Use
  Company Number: JP-BOEHRINGER INGELHEIM PHARMACEUTICALS, INC.-2005-BP-20667NB

PATIENT
  Sex: Female
  Weight: 65 kg

DRUGS (8)
  1. MICARDIS [Suspect]
     Indication: HYPERTENSION
     Route: 048
     Dates: start: 20051011, end: 20051122
  2. ZYLORIC [Suspect]
     Route: 048
     Dates: start: 20051011, end: 20051122
  3. SERMION [Concomitant]
     Route: 048
     Dates: start: 19990406, end: 20051122
  4. ADALAT [Concomitant]
     Route: 048
     Dates: start: 19990406, end: 20051128
  5. PAXIL [Concomitant]
     Route: 048
     Dates: start: 20040329, end: 20051128
  6. ALPRAZOLAM [Concomitant]
     Route: 048
     Dates: start: 20040329, end: 20051122
  7. ACTOS [Concomitant]
     Route: 048
     Dates: start: 20040427, end: 20051122
  8. PANALDINE [Concomitant]
     Route: 048
     Dates: start: 19990406, end: 20051122

REACTIONS (7)
  - ERYTHEMA [None]
  - GENERALISED OEDEMA [None]
  - LIVER DISORDER [None]
  - RASH [None]
  - RENAL DISORDER [None]
  - SWELLING [None]
  - URINE OUTPUT DECREASED [None]
